FAERS Safety Report 13425509 (Version 1)
Quarter: 2017Q2

REPORT INFORMATION
  Report Type: Spontaneous
  Country: SE (occurrence: SE)
  Receive Date: 20170411
  Receipt Date: 20170411
  Transmission Date: 20170830
  Serious: Yes (Hospitalization)
  Sender: FDA-Public Use
  Company Number: SE-ASTRAZENECA-2017SE34893

PATIENT
  Age: 41 Year
  Sex: Female

DRUGS (5)
  1. FLUANXOL [Suspect]
     Active Substance: FLUPENTIXOL
     Dosage: 18.0MG UNKNOWN
     Route: 065
     Dates: start: 20170309, end: 20170309
  2. LITHIONIT [Suspect]
     Active Substance: LITHIUM SULFATE
     Dosage: 756.0MG UNKNOWN
     Route: 065
     Dates: start: 20170309, end: 20170309
  3. SEROQUEL [Suspect]
     Active Substance: QUETIAPINE FUMARATE
     Dosage: 3600.0MG UNKNOWN
     Route: 048
     Dates: start: 20170309, end: 20170309
  4. LEVAXIN [Suspect]
     Active Substance: LEVOTHYROXINE SODIUM
     Indication: HYPOTHYROIDISM
     Dosage: 600.0UG UNKNOWN
     Route: 065
     Dates: start: 20170309, end: 20170309
  5. SERTRALINE [Suspect]
     Active Substance: SERTRALINE HYDROCHLORIDE
     Dosage: 300.0MG UNKNOWN
     Route: 065
     Dates: start: 20170309, end: 20170309

REACTIONS (2)
  - Suicide attempt [Recovered/Resolved]
  - Toxicity to various agents [Recovered/Resolved]

NARRATIVE: CASE EVENT DATE: 20170309
